FAERS Safety Report 4383881-X (Version None)
Quarter: 2004Q2

REPORT INFORMATION
  Report Type: 
  Country: None (occurrence: None)
  Receive Date: 20040623
  Receipt Date: 20040623
  Transmission Date: 20050107
  Serious: No
  Sender: FDA-Public Use
  Company Number: None

PATIENT
  Age: 32 Year
  Sex: Female
  Weight: 78.9259 kg

DRUGS (1)
  1. TRETINOIN [Suspect]
     Indication: ACNE
     Dosage: 1 X BEFORE BED
     Dates: start: 20040427, end: 20040502

REACTIONS (3)
  - EYE BURNS [None]
  - EYE DISORDER [None]
  - PHARMACEUTICAL PRODUCT COMPLAINT [None]
